FAERS Safety Report 17848783 (Version 1)
Quarter: 2020Q2

REPORT INFORMATION
  Report Type: Spontaneous
  Country: US (occurrence: US)
  Receive Date: 20200602
  Receipt Date: 20200602
  Transmission Date: 20200714
  Serious: No
  Sender: FDA-Public Use
  Company Number: US-JNJFOC-20200516289

PATIENT
  Age: 6 Decade
  Sex: Female
  Weight: 82.17 kg

DRUGS (1)
  1. WOMENS ROGAINE UNSCENTED [Suspect]
     Active Substance: MINOXIDIL
     Indication: ALOPECIA
     Dosage: A CUPFUL?LAST USED PRODUCT ON 12-MAY-2020
     Route: 061
     Dates: start: 20200422

REACTIONS (3)
  - Application site pruritus [Recovering/Resolving]
  - Headache [Recovered/Resolved]
  - Overdose [Unknown]

NARRATIVE: CASE EVENT DATE: 20200422
